FAERS Safety Report 16907392 (Version 2)
Quarter: 2020Q1

REPORT INFORMATION
  Report Type: Report from Study
  Country: IT (occurrence: IT)
  Receive Date: 20191011
  Receipt Date: 20200304
  Transmission Date: 20200409
  Serious: Yes (Other)
  Sender: FDA-Public Use
  Company Number: IT-TEVA-2019-IT-1119460

PATIENT
  Age: 43 Year
  Sex: Female
  Weight: 51 kg

DRUGS (1)
  1. FLUOROURACIL. [Suspect]
     Active Substance: FLUOROURACIL
     Indication: CERVIX CARCINOMA
     Dosage: 1530 MG PER 1 CYCLICAL
     Route: 042

REACTIONS (3)
  - Infusion site pain [Recovering/Resolving]
  - Vascular access site swelling [Recovering/Resolving]
  - Extravasation [Recovering/Resolving]

NARRATIVE: CASE EVENT DATE: 20190731
